FAERS Safety Report 4522523-7 (Version None)
Quarter: 2004Q4

REPORT INFORMATION
  Report Type: 
  Country: None (occurrence: None)
  Receive Date: 20041207
  Receipt Date: 20041125
  Transmission Date: 20050328
  Serious: No
  Sender: FDA-Public Use
  Company Number: 2004PK01971

PATIENT
  Age: 64 Year
  Sex: Male
  Weight: 76 kg

DRUGS (2)
  1. BELOC ZOK [Suspect]
     Dosage: 95 MG DAILY PO
     Route: 048
     Dates: start: 20040701
  2. ATACAND [Concomitant]

REACTIONS (1)
  - PEYRONIE'S DISEASE [None]
